FAERS Safety Report 17180732 (Version 5)
Quarter: 2022Q1

REPORT INFORMATION
  Report Type: Spontaneous
  Country: HU (occurrence: HU)
  Receive Date: 20191219
  Receipt Date: 20220331
  Transmission Date: 20220424
  Serious: Yes (Other)
  Sender: FDA-Public Use
  Company Number: HU-PFIZER INC-2019542620

PATIENT
  Age: 70 Year
  Sex: Male
  Weight: 98 kg

DRUGS (9)
  1. AMLODIPINE BESYLATE [Suspect]
     Active Substance: AMLODIPINE BESYLATE
     Dosage: UNK, 1X/DAY (IN THE EVENING)
     Route: 065
  2. CARVEDILOL [Suspect]
     Active Substance: CARVEDILOL
     Dosage: 25 MG, 2X/DAY
     Route: 065
  3. PERINDOPRIL [Suspect]
     Active Substance: PERINDOPRIL
     Dosage: UNK, 1X/DAY (IN THE EVENING)
     Route: 065
  4. PANTOPRAZOLE [Suspect]
     Active Substance: PANTOPRAZOLE
     Dosage: 20 MG, 1X/DAY (IN THE EVENING)
     Route: 065
  5. METOPROLOL [Suspect]
     Active Substance: METOPROLOL
     Dosage: 50 MG, 2X/DAY
     Route: 065
  6. ENALAPRIL [Suspect]
     Active Substance: ENALAPRIL
     Dosage: 5 MG, 2X/DAY
     Route: 065
  7. TRIMETAZIDINE [Concomitant]
     Active Substance: TRIMETAZIDINE
     Dosage: 70 MG, 1X/DAY
     Route: 065
  8. ASPIRIN [Concomitant]
     Active Substance: ASPIRIN
     Dosage: UNK, 1X/DAY (IN THE MORNING)
     Route: 065
  9. FENOFIBRATE [Concomitant]
     Active Substance: FENOFIBRATE
     Dosage: 160 MG, 1X/DAY (IN THE EVENING)

REACTIONS (9)
  - Obesity [Recovering/Resolving]
  - Chest discomfort [Recovering/Resolving]
  - Hyperlipidaemia [Unknown]
  - Respiration abnormal [Unknown]
  - Ventricular hypertrophy [Unknown]
  - Arthralgia [Unknown]
  - Tachycardia [Unknown]
  - Glucose tolerance impaired [Unknown]
  - Metabolic syndrome [Unknown]
